FAERS Safety Report 5908101-3 (Version None)
Quarter: 2008Q4

REPORT INFORMATION
  Report Type: 
  Country: None (occurrence: None)
  Receive Date: 20081003
  Receipt Date: 20080922
  Transmission Date: 20090506
  Serious: Yes (Hospitalization, Other)
  Sender: FDA-Public Use
  Company Number: CA-PFIZER INC-2008080934

PATIENT
  Age: 44 Year
  Sex: Male

DRUGS (4)
  1. PENICILLIN G PROCAINE [Suspect]
     Route: 042
  2. PENICILLIN G POTASSIUM [Suspect]
     Route: 048
  3. CLINDAMYCIN HCL [Concomitant]
  4. GENTAMICIN [Concomitant]

REACTIONS (1)
  - HYPERKALAEMIA [None]
